FAERS Safety Report 5491174-2 (Version None)
Quarter: 2007Q4

REPORT INFORMATION
  Report Type: 
  Country: None (occurrence: None)
  Receive Date: 20071019
  Receipt Date: 20071008
  Transmission Date: 20080405
  Serious: Yes (Hospitalization, Other)
  Sender: FDA-Public Use
  Company Number: FR-PFIZER INC-2007085083

PATIENT
  Age: 38 Year
  Sex: Male

DRUGS (1)
  1. SALAZOPYRINE [Suspect]
     Indication: SPONDYLITIS

REACTIONS (1)
  - ENCEPHALOPATHY [None]
